FAERS Safety Report 7808370-9 (Version None)
Quarter: 2011Q4

REPORT INFORMATION
  Report Type: 
  Country: None (occurrence: None)
  Receive Date: 20111011
  Receipt Date: 20111011
  Transmission Date: 20120403
  Serious: Yes (Hospitalization)
  Sender: FDA-Public Use
  Company Number: None

PATIENT
  Age: 57 Year
  Sex: Male
  Weight: 95.5 kg

DRUGS (1)
  1. IOPAMIDOL [Suspect]
     Indication: INVESTIGATION
     Dosage: 100 MG ONCE IV
     Route: 042
     Dates: start: 20110826, end: 20110826

REACTIONS (3)
  - PRURITUS [None]
  - URTICARIA [None]
  - LARYNGOSPASM [None]
